FAERS Safety Report 10682575 (Version 2)
Quarter: 2015Q1

REPORT INFORMATION
  Report Type: Spontaneous
  Country: US (occurrence: None)
  Receive Date: 20141224
  Receipt Date: 20150126
  Transmission Date: 20150720
  Serious: No
  Sender: FDA-Public Use
  Company Number: 2014-US-015748

PATIENT
  Sex: Male
  Weight: 118.8 kg

DRUGS (3)
  1. XYREM [Suspect]
     Active Substance: SODIUM OXYBATE
     Indication: SLEEP DISORDER
     Route: 048
     Dates: start: 201203
  2. MINOCYCLINE [Suspect]
     Active Substance: MINOCYCLINE\MINOCYCLINE HYDROCHLORIDE
     Indication: PRODUCT USED FOR UNKNOWN INDICATION
  3. ARMOUR THYROID [Concomitant]
     Active Substance: THYROID, PORCINE\THYROID, UNSPECIFIED

REACTIONS (10)
  - Sleep apnoea syndrome [None]
  - Fatigue [None]
  - Periodic limb movement disorder [None]
  - Skin discolouration [None]
  - Off label use [None]
  - Depression [None]
  - Blood viscosity abnormal [None]
  - Dizziness [None]
  - Anxiety [None]
  - Headache [None]
